FAERS Safety Report 17606801 (Version 1)
Quarter: 2020Q1

REPORT INFORMATION
  Report Type: Report from Study
  Country: US (occurrence: US)
  Receive Date: 20200331
  Receipt Date: 20200331
  Transmission Date: 20200409
  Serious: Yes (Other)
  Sender: FDA-Public Use
  Company Number: US-MYLANLABS-2020M1034160

PATIENT

DRUGS (5)
  1. LMB 100 [Interacting]
     Active Substance: LMB-100
     Indication: ADENOCARCINOMA PANCREAS
     Dosage: INFUSIONS OVER 30 MINUTES ON DAYS 1, 3 AND 5 OF EACH 21-DAY TREATMENT CYCLE
     Route: 042
  2. ACETAMINOPHEN. [Concomitant]
     Active Substance: ACETAMINOPHEN
     Indication: PRODUCT USED FOR UNKNOWN INDICATION
     Dosage: UNK
     Route: 065
  3. RANITIDINE. [Concomitant]
     Active Substance: RANITIDINE
     Indication: PRODUCT USED FOR UNKNOWN INDICATION
     Dosage: UNK
     Route: 065
  4. PACLITAXEL. [Suspect]
     Active Substance: PACLITAXEL
     Indication: ADENOCARCINOMA PANCREAS
     Dosage: INFUSIONS ON DAYS 1 AND 8 OF EACH 21-DAY TREATMENT CYCLE
     Route: 042
  5. DIPHENHYDRAMINE. [Concomitant]
     Active Substance: DIPHENHYDRAMINE
     Indication: PRODUCT USED FOR UNKNOWN INDICATION
     Dosage: UNK
     Route: 065

REACTIONS (3)
  - Hypoalbuminaemia [Unknown]
  - Drug interaction [Unknown]
  - Capillary leak syndrome [Unknown]
